FAERS Safety Report 4708085-X (Version None)
Quarter: 2005Q3

REPORT INFORMATION
  Report Type: 
  Country: None (occurrence: None)
  Receive Date: 20050707
  Receipt Date: 20050504
  Transmission Date: 20060218
  Serious: Yes (Death)
  Sender: FDA-Public Use
  Company Number: DE-BOEHRINGER INGELHEIM PHARMACEUTICALS, INC.-2005-DE-01725DE

PATIENT
  Sex: Male

DRUGS (4)
  1. AGGRENOX [Suspect]
     Indication: CORONARY ARTERY DISEASE
     Route: 048
     Dates: start: 20040705
  2. DELIX [Concomitant]
     Indication: HYPERTENSION
     Route: 048
  3. NIF-TEN [Concomitant]
     Indication: HYPERTENSION
     Route: 048
  4. PROSCAR [Concomitant]
     Indication: BENIGN PROSTATIC HYPERPLASIA
     Route: 048

REACTIONS (5)
  - EAR HAEMORRHAGE [None]
  - EPISTAXIS [None]
  - GASTROINTESTINAL HAEMORRHAGE [None]
  - HAEMATEMESIS [None]
  - VOMITING [None]
